FAERS Safety Report 18463493 (Version 1)
Quarter: 2020Q4

REPORT INFORMATION
  Report Type: Spontaneous
  Country: US (occurrence: US)
  Receive Date: 20201104
  Receipt Date: 20201104
  Transmission Date: 20210114
  Serious: No
  Sender: FDA-Public Use
  Company Number: US-TEVA-2020-US-1845004

PATIENT

DRUGS (1)
  1. SOTALOL HCL [Suspect]
     Active Substance: SOTALOL
     Route: 065

REACTIONS (1)
  - Diarrhoea [Unknown]
